FAERS Safety Report 8204285-5 (Version None)
Quarter: 2012Q1

REPORT INFORMATION
  Report Type: 
  Country: None (occurrence: None)
  Receive Date: 20120227
  Receipt Date: 20120109
  Transmission Date: 20120608
  Serious: No
  Sender: FDA-Public Use
  Company Number: 342828

PATIENT
  Age: 61 Year
  Sex: Male

DRUGS (1)
  1. VICTOZA [Suspect]
     Indication: TYPE 2 DIABETES MELLITUS
     Dosage: 0.5 MG, BID, SUBCUTANEOUS
     Route: 058
     Dates: start: 20120102

REACTIONS (3)
  - MUSCULOSKELETAL PAIN [None]
  - NECK PAIN [None]
  - BLOOD GLUCOSE INCREASED [None]
